FAERS Safety Report 4641779-3 (Version None)
Quarter: 2005Q2

REPORT INFORMATION
  Report Type: 
  Country: None (occurrence: None)
  Receive Date: 20050421
  Receipt Date: 20050412
  Transmission Date: 20051028
  Serious: Yes (Hospitalization)
  Sender: FDA-Public Use
  Company Number: SU-2005-003418

PATIENT
  Sex: Female

DRUGS (1)
  1. WELCHOL [Suspect]

REACTIONS (1)
  - CHOKING [None]
